FAERS Safety Report 5050381-3 (Version None)
Quarter: 2006Q3

REPORT INFORMATION
  Report Type: 
  Country: None (occurrence: None)
  Receive Date: 20060707
  Receipt Date: 20060621
  Transmission Date: 20061208
  Serious: Yes (Other)
  Sender: FDA-Public Use
  Company Number: 8017575

PATIENT
  Age: 80 Year
  Sex: Female

DRUGS (2)
  1. KEPPRA [Suspect]
     Indication: EPILEPSY
     Dosage: PO
     Route: 048
  2. DEPAKENE [Suspect]
     Indication: EPILEPSY
     Dosage: PO
     Route: 048

REACTIONS (1)
  - THROMBOCYTOPENIA [None]
